FAERS Safety Report 7197300-1 (Version None)
Quarter: 2010Q4

REPORT INFORMATION
  Report Type: 
  Country: None (occurrence: None)
  Receive Date: 20101227
  Receipt Date: 20101215
  Transmission Date: 20110411
  Serious: Yes (Other)
  Sender: FDA-Public Use
  Company Number: US-BIOGENIDEC-2007BI001064

PATIENT
  Age: 55 Year
  Sex: Female

DRUGS (2)
  1. TYSABRI [Suspect]
     Indication: MULTIPLE SCLEROSIS
     Route: 042
     Dates: start: 20070108, end: 20070314
  2. TYSABRI [Suspect]
     Route: 042
     Dates: start: 20050201, end: 20050201

REACTIONS (7)
  - ARTHRALGIA [None]
  - HEADACHE [None]
  - HYPERSENSITIVITY [None]
  - LYMPH NODE PAIN [None]
  - OEDEMA PERIPHERAL [None]
  - OROPHARYNGEAL PAIN [None]
  - PAIN IN EXTREMITY [None]
